FAERS Safety Report 7663080 (Version 4)
Quarter: 2013Q4

REPORT INFORMATION
  Report Type: Spontaneous
  Country: US (occurrence: US)
  Receive Date: 20101110
  Receipt Date: 20131230
  Transmission Date: 20140711
  Serious: Yes (Hospitalization)
  Sender: FDA-Public Use
  Company Number: US-BAYER-201040036NA

PATIENT
  Age: 30 Year
  Sex: Female

DRUGS (8)
  1. YASMIN [Suspect]
     Indication: ACNE
     Route: 048
     Dates: start: 200208, end: 200607
  2. YASMIN [Suspect]
     Indication: CONTRACEPTION
     Dosage: UNK
     Dates: start: 200610, end: 200701
  3. YAZ [Suspect]
     Indication: ACNE
     Dates: start: 200608, end: 200609
  4. YAZ [Suspect]
     Indication: CONTRACEPTION
     Dosage: UNK
     Dates: start: 200702, end: 200807
  5. ZANTAC [Concomitant]
  6. EFFEXOR XR [Concomitant]
     Indication: DEPRESSION
     Dosage: 150 MG, UNK
     Route: 048
     Dates: start: 200603, end: 200607
  7. TRAZODONE [Concomitant]
     Indication: DEPRESSION
     Dosage: 50 MG, UNK
     Dates: start: 200502, end: 200607
  8. LAMICTAL [Concomitant]
     Indication: AFFECTIVE DISORDER
     Dosage: UNK
     Dates: start: 200601, end: 200804

REACTIONS (2)
  - Cholecystitis chronic [None]
  - Pain [None]
